FAERS Safety Report 23176621 (Version 1)
Quarter: 2023Q4

REPORT INFORMATION
  Report Type: Other
  Country: None (occurrence: US)
  Receive Date: 20231113
  Receipt Date: 20231113
  Transmission Date: 20240110
  Serious: Yes (Hospitalization, Other)
  Sender: FDA-Public Use
  Company Number: US-Owlpharma Consulting, Lda.-2148196

PATIENT
  Age: 55 Year
  Sex: Male

DRUGS (11)
  1. DEXMEDETOMIDINE [Suspect]
     Active Substance: DEXMEDETOMIDINE
     Indication: Product used for unknown indication
     Route: 065
  2. AMINOCAPROIC ACID [Concomitant]
     Active Substance: AMINOCAPROIC ACID
  3. VANCOMYCIN HYDROCHLORIDE [Concomitant]
     Active Substance: VANCOMYCIN HYDROCHLORIDE
  4. CEFAZOLIN SODIUM [Concomitant]
     Active Substance: CEFAZOLIN SODIUM
  5. NOREPINEPHRINE [Concomitant]
     Active Substance: NOREPINEPHRINE
  6. EPINEPHRINE [Concomitant]
     Active Substance: EPINEPHRINE
  7. PROTAMINE SULFATE [Concomitant]
     Active Substance: PROTAMINE SULFATE
  8. MAGNESIUM SULFATE [Concomitant]
     Active Substance: MAGNESIUM SULFATE\MAGNESIUM SULFATE HEPTAHYDRATE
  9. POTASSIUM CHLORIDE [Concomitant]
     Active Substance: POTASSIUM CHLORIDE
  10. CALCIUM CHLORIDE [Concomitant]
     Active Substance: CALCIUM CHLORIDE
  11. INSULIN NOS [Concomitant]
     Active Substance: INSULIN NOS
     Route: 042

REACTIONS (1)
  - Diabetes insipidus [Recovered/Resolved]
